FAERS Safety Report 4575701-5 (Version None)
Quarter: 2005Q1

REPORT INFORMATION
  Report Type: 
  Country: None (occurrence: None)
  Receive Date: 20050128
  Receipt Date: 20050128
  Transmission Date: 20050727
  Serious: No
  Sender: FDA-Public Use
  Company Number: None

PATIENT
  Sex: Male
  Weight: 51.4 kg

DRUGS (1)
  1. TEMOZOLOMIDE 300 MG GIVEN PO DAILY X 5 DAYS [Suspect]
     Indication: ACUTE MYELOID LEUKAEMIA
     Dosage: 300 MG GIVEN PO DAILY X 5 DAYS
     Route: 048
     Dates: start: 20041216

REACTIONS (13)
  - ABDOMINAL PAIN UPPER [None]
  - APNOEA [None]
  - BLOOD CREATININE INCREASED [None]
  - CARDIAC ARREST [None]
  - COUGH [None]
  - LUNG INFILTRATION [None]
  - NEUTROPENIA [None]
  - OXYGEN SATURATION DECREASED [None]
  - PYREXIA [None]
  - RESPIRATORY DISTRESS [None]
  - RESPIRATORY RATE INCREASED [None]
  - TACHYPNOEA [None]
  - URINE OUTPUT DECREASED [None]
